FAERS Safety Report 21227012 (Version 1)
Quarter: 2022Q3

REPORT INFORMATION
  Report Type: Spontaneous
  Country: NL (occurrence: NL)
  Receive Date: 20220818
  Receipt Date: 20220818
  Transmission Date: 20221027
  Serious: Yes (Other)
  Sender: FDA-Public Use
  Company Number: None

PATIENT
  Age: 72 Year
  Sex: Male
  Weight: 74 kg

DRUGS (5)
  1. FINASTERIDE [Suspect]
     Active Substance: FINASTERIDE
     Indication: Haematuria
     Dosage: 1D1T
     Dates: start: 20220523, end: 20220610
  2. METOPROLOL SUCCINATE [Concomitant]
     Active Substance: METOPROLOL SUCCINATE
     Dosage: 50 MG (MILLIGRAM)
  3. ATORVASTATIN [Concomitant]
     Active Substance: ATORVASTATIN
     Dosage: 10 MG (MILLIGRAM)
  4. OMEPRAZOLE [Concomitant]
     Active Substance: OMEPRAZOLE
     Dosage: 20 MG (MILLIGRAM)
  5. TAMSULOSIN [Concomitant]
     Active Substance: TAMSULOSIN
     Dosage: MODIFIED-RELEASE CAPSU0,4 MG (MILLIGRAM)

REACTIONS (2)
  - Scrotal pain [Recovering/Resolving]
  - Epididymitis [Recovering/Resolving]

NARRATIVE: CASE EVENT DATE: 20220530
